FAERS Safety Report 11851498 (Version 1)
Quarter: 2015Q4

REPORT INFORMATION
  Report Type: Spontaneous
  Country: US (occurrence: US)
  Receive Date: 20151218
  Receipt Date: 20151218
  Transmission Date: 20160305
  Serious: No
  Sender: FDA-Public Use
  Company Number: US-JNJFOC-20151125127

PATIENT
  Age: 52 Year
  Sex: Male
  Weight: 90.27 kg

DRUGS (14)
  1. MENS ROGAINE EXTRA STRENGTH [Suspect]
     Active Substance: MINOXIDIL
     Indication: ALOPECIA
     Dosage: 1 CAPFUL TWICE A DAY
     Route: 061
     Dates: start: 20151123
  2. METFORMIN [Concomitant]
     Active Substance: METFORMIN HYDROCHLORIDE
     Indication: TYPE 2 DIABETES MELLITUS
     Dosage: FOR ABOUT 7 YEARS
     Route: 065
     Dates: start: 200801
  3. BYSTOLIC [Concomitant]
     Active Substance: NEBIVOLOL HYDROCHLORIDE
     Indication: TYPE 2 DIABETES MELLITUS
     Dosage: FOR ABOUT 11 MONTHS
     Route: 065
     Dates: start: 201401
  4. LOTREL [Concomitant]
     Active Substance: AMLODIPINE BESYLATE\BENAZEPRIL HYDROCHLORIDE
     Indication: HYPERTENSION
     Dosage: 10/40MG PER DAY SINCE 4 YEARS 11 MONTHS
     Route: 065
     Dates: start: 201001
  5. LOVAZA [Concomitant]
     Active Substance: OMEGA-3-ACID ETHYL ESTERS
     Indication: HYPERTENSION
     Dosage: FOR 5 YEARS
     Route: 065
     Dates: start: 201001
  6. MENS ROGAINE EXTRA STRENGTH [Suspect]
     Active Substance: MINOXIDIL
     Route: 061
  7. ZOLOFT [Concomitant]
     Active Substance: SERTRALINE HYDROCHLORIDE
     Indication: OBSESSIVE-COMPULSIVE DISORDER
     Dosage: FOR ABOUT 10 YEARS
     Route: 065
     Dates: start: 2005
  8. KLONOPIN [Concomitant]
     Active Substance: CLONAZEPAM
     Indication: PANIC DISORDER
     Dosage: FOR ABOUT 15 YEARS
     Route: 065
     Dates: start: 2000
  9. MENS ROGAINE EXTRA STRENGTH [Suspect]
     Active Substance: MINOXIDIL
     Route: 061
  10. CLONIDINE. [Concomitant]
     Active Substance: CLONIDINE
     Indication: HYPERTENSION
     Dosage: FOR 1 MONTH
     Route: 065
     Dates: start: 201510
  11. MENS ROGAINE EXTRA STRENGTH [Suspect]
     Active Substance: MINOXIDIL
     Indication: ALOPECIA
     Dosage: 1 CAP
     Route: 061
  12. REMERON [Concomitant]
     Active Substance: MIRTAZAPINE
     Indication: SLEEP DISORDER THERAPY
     Dosage: FOR ABOUT 12 YEARS
     Route: 065
     Dates: start: 200301
  13. CHILDRENS ASPIRIN [Concomitant]
     Active Substance: ASPIRIN
     Indication: CARDIAC DISORDER
     Dosage: FOR ABOUT 10 YEARS
     Route: 065
     Dates: start: 201001
  14. FLUVOXAMINE [Concomitant]
     Active Substance: FLUVOXAMINE
     Indication: HYPERTENSION
     Dosage: SINCE ONCE YEAR
     Route: 065
     Dates: start: 201411

REACTIONS (2)
  - Drug administered at inappropriate site [Unknown]
  - Pruritus [Unknown]
